FAERS Safety Report 5752328-0 (Version None)
Quarter: 2008Q2

REPORT INFORMATION
  Report Type: 
  Country: None (occurrence: None)
  Receive Date: 20080529
  Receipt Date: 20080521
  Transmission Date: 20081010
  Serious: Yes (Hospitalization)
  Sender: FDA-Public Use
  Company Number: US-GENENTECH-261466

PATIENT
  Sex: Female
  Weight: 67.3 kg

DRUGS (5)
  1. RITUXAN [Suspect]
     Indication: NON-HODGKIN'S LYMPHOMA
     Dosage: 375 MG/M2, UNK
     Dates: start: 20080429
  2. BENDAMUSTINE [Suspect]
     Indication: NON-HODGKIN'S LYMPHOMA
     Dosage: 70 MG/M2, UNK
     Route: 042
     Dates: start: 20080429
  3. VELCADE [Concomitant]
     Indication: DRUG USE FOR UNKNOWN INDICATION
     Dosage: 1.6 MG/M2, UNK
     Dates: start: 20080429
  4. IRON [Concomitant]
     Indication: DRUG USE FOR UNKNOWN INDICATION
  5. VALTREX [Concomitant]
     Indication: DRUG USE FOR UNKNOWN INDICATION

REACTIONS (2)
  - DYSPNOEA [None]
  - SINUS TACHYCARDIA [None]
